FAERS Safety Report 7334472-X (Version None)
Quarter: 2011Q1

REPORT INFORMATION
  Report Type: 
  Country: None (occurrence: None)
  Receive Date: 20110307
  Receipt Date: 20110228
  Transmission Date: 20110831
  Serious: Yes (Hospitalization, Other)
  Sender: FDA-Public Use
  Company Number: US-BRISTOL-MYERS SQUIBB COMPANY-15574908

PATIENT
  Age: 65 Year
  Sex: Female
  Weight: 65 kg

DRUGS (1)
  1. SPRYCEL [Suspect]
     Indication: CHRONIC MYELOID LEUKAEMIA

REACTIONS (12)
  - DYSPNOEA [None]
  - HEART RATE INCREASED [None]
  - FLUSHING [None]
  - MEMORY IMPAIRMENT [None]
  - OXYGEN SATURATION DECREASED [None]
  - TREMOR [None]
  - FATIGUE [None]
  - CONFUSIONAL STATE [None]
  - DISTURBANCE IN ATTENTION [None]
  - DIZZINESS [None]
  - CHILLS [None]
  - CHEST PAIN [None]
